FAERS Safety Report 15642973 (Version 1)
Quarter: 2018Q4

REPORT INFORMATION
  Report Type: Spontaneous
  Country: GB (occurrence: GB)
  Receive Date: 20181121
  Receipt Date: 20181121
  Transmission Date: 20190205
  Serious: Yes (Other)
  Sender: FDA-Public Use
  Company Number: GB-MICRO LABS LIMITED-BB2018-02524

PATIENT
  Age: 92 Year
  Sex: Female
  Weight: 50 kg

DRUGS (18)
  1. ACIDEX [Concomitant]
     Active Substance: CALCIUM CARBONATE\SODIUM ALGINATE\SODIUM BICARBONATE
     Dosage: TAKE 10-20MLS AFTER MEALS AND AT BEDTIME
     Dates: start: 20180126
  2. DOXAZOSIN [Concomitant]
     Active Substance: DOXAZOSIN\DOXAZOSIN MESYLATE
     Dates: start: 20180126
  3. RALVO [Concomitant]
     Dosage: MORNING
     Dates: start: 20181005
  4. SODIUM HYALURONATE [Concomitant]
     Active Substance: HYALURONATE SODIUM
     Dosage: DROP IN EYE LEFT
  5. LIDOCAINE. [Concomitant]
     Active Substance: LIDOCAINE
     Dosage: MORNING
     Dates: start: 20180126, end: 20181005
  6. GABAPENTIN. [Concomitant]
     Active Substance: GABAPENTIN
     Dates: start: 20180126
  7. AMIODARONE [Concomitant]
     Active Substance: AMIODARONE
     Dates: start: 20180126
  8. RAMIPRIL. [Concomitant]
     Active Substance: RAMIPRIL
     Dates: start: 20180126
  9. AMOXICILLIN/CLAVULANIC ACID [Suspect]
     Active Substance: AMOXICILLIN\CLAVULANIC ACID
     Indication: URINARY TRACT INFECTION
     Dosage: FOR SEVEN DAYS. 500/125MG
     Dates: start: 20181017
  10. ISOSORBIDE MONONITRATE. [Concomitant]
     Active Substance: ISOSORBIDE MONONITRATE
     Dates: start: 20180126
  11. FUROSEMIDE. [Concomitant]
     Active Substance: FUROSEMIDE
     Dosage: MORNING
     Dates: start: 20181012
  12. TINZAPARIN [Concomitant]
     Active Substance: TINZAPARIN
     Dates: start: 20181002
  13. LOPERAMIDE [Concomitant]
     Active Substance: LOPERAMIDE
     Dosage: THREE TIMES A DAY.
     Dates: start: 20180810, end: 20180907
  14. PARACETAMOL [Concomitant]
     Active Substance: ACETAMINOPHEN
     Dosage: TAKE ONE OR TWO 4 TIMES/DAY
     Dates: start: 20180126
  15. GLYCERYL TRINITRATE [Concomitant]
     Active Substance: NITROGLYCERIN
     Dosage: PUFF
     Dates: start: 20180126
  16. MATRIFEN [Concomitant]
     Active Substance: FENTANYL
     Dates: start: 20180126
  17. FLUCLOXACILLIN [Concomitant]
     Active Substance: FLUCLOXACILLIN
     Dosage: FOR SEVEN DAYS
     Dates: start: 20180905, end: 20180912
  18. RANITIDINE. [Concomitant]
     Active Substance: RANITIDINE
     Dates: start: 20180126

REACTIONS (2)
  - Tinnitus [Unknown]
  - Arthralgia [Recovering/Resolving]

NARRATIVE: CASE EVENT DATE: 20181021
